FAERS Safety Report 8608524-8 (Version None)
Quarter: 2012Q3

REPORT INFORMATION
  Report Type: 
  Country: None (occurrence: None)
  Receive Date: 20120821
  Receipt Date: 20120813
  Transmission Date: 20120928
  Serious: Yes (Other)
  Sender: FDA-Public Use
  Company Number: US-CELGENEUS-163-21880-12060298

PATIENT
  Sex: Female
  Weight: 97.2 kg

DRUGS (4)
  1. REVLIMID [Suspect]
     Dosage: 25 MILLIGRAM
     Route: 048
     Dates: start: 20120402
  2. REVLIMID [Suspect]
     Dosage: 25 MILLIGRAM
     Route: 048
     Dates: start: 20120411, end: 20120501
  3. REVLIMID [Suspect]
     Dosage: 25 MILLIGRAM
     Route: 048
     Dates: start: 20120730
  4. REVLIMID [Suspect]
     Indication: MULTIPLE MYELOMA
     Dosage: 25 MILLIGRAM
     Route: 048
     Dates: start: 20110214, end: 20110501

REACTIONS (7)
  - SEDATION [None]
  - DEPRESSION [None]
  - RASH PRURITIC [None]
  - INSOMNIA [None]
  - BLOOD COUNT ABNORMAL [None]
  - CONSTIPATION [None]
  - PATHOLOGICAL FRACTURE [None]
